FAERS Safety Report 25487479 (Version 1)
Quarter: 2025Q2

REPORT INFORMATION
  Report Type: Report from Study
  Country: BG (occurrence: BG)
  Receive Date: 20250627
  Receipt Date: 20250627
  Transmission Date: 20250716
  Serious: Yes (Other)
  Sender: UCB
  Company Number: BG-UCBSA-2025038211

PATIENT
  Sex: Male

DRUGS (1)
  1. CIMZIA [Suspect]
     Active Substance: CERTOLIZUMAB PEGOL
     Indication: Ankylosing spondylitis
     Dosage: UNK, EV 2 WEEKS(QOW)
     Route: 058
     Dates: start: 2024

REACTIONS (3)
  - Immunodeficiency [Recovering/Resolving]
  - Viral infection [Recovering/Resolving]
  - Malaise [Recovering/Resolving]

NARRATIVE: CASE EVENT DATE: 20241101
